FAERS Safety Report 10071936 (Version 1)
Quarter: 2014Q2

REPORT INFORMATION
  Report Type: Spontaneous
  Country: CA (occurrence: CA)
  Receive Date: 20140411
  Receipt Date: 20140411
  Transmission Date: 20141212
  Serious: Yes (Other)
  Sender: FDA-Public Use
  Company Number: CA-009507513-1404CAN005185

PATIENT
  Age: 52 Year
  Sex: Female

DRUGS (1)
  1. SINGULAIR [Suspect]
     Indication: ASTHMA
     Dosage: DAILY 10 MG
     Route: 048
     Dates: start: 20110829

REACTIONS (3)
  - Mass excision [Unknown]
  - Aphonia [Unknown]
  - Oropharyngeal pain [Unknown]
